FAERS Safety Report 8775086 (Version 1)
Quarter: 2012Q4

REPORT INFORMATION
  Report Type: 
  Country: FR (occurrence: FR)
  Receive Date: 20120910
  Receipt Date: 20120910
  Transmission Date: 20130627
  Serious: No
  Sender: FDA-Public Use
  Company Number: FR-JNJFOC-20120813020

PATIENT
  Sex: Female

DRUGS (2)
  1. DUROGESIC [Suspect]
     Indication: PAIN
     Route: 062
  2. DUROGESIC [Suspect]
     Indication: PAIN
     Route: 062
     Dates: start: 20120824, end: 20120827

REACTIONS (3)
  - Inappropriate schedule of drug administration [Unknown]
  - Product quality issue [Unknown]
  - Wrong technique in drug usage process [Unknown]
